FAERS Safety Report 7180001-3 (Version None)
Quarter: 2010Q4

REPORT INFORMATION
  Report Type: 
  Country: None (occurrence: None)
  Receive Date: 20101221
  Receipt Date: 20101208
  Transmission Date: 20110411
  Serious: Yes (Life-Threatening, Hospitalization)
  Sender: FDA-Public Use
  Company Number: US-ACTELION-A-NJ2010-40501

PATIENT

DRUGS (6)
  1. BOSENTAN TABLET UNKNOWN US MG [Suspect]
     Indication: PULMONARY ARTERIAL HYPERTENSION
     Dosage: UNK
     Route: 048
     Dates: start: 20100726
  2. BOSENTAN TABLET UNKNOWN US MG [Suspect]
     Dosage: UNK
     Route: 048
     Dates: start: 20080929
  3. BOSENTAN TABLET UNKNOWN US MG [Suspect]
     Dosage: 62.5 MG, BID
     Route: 048
     Dates: start: 20081101, end: 20090601
  4. BOSENTAN TABLET UNKNOWN US MG [Suspect]
     Dosage: UNK
     Route: 048
     Dates: start: 20090101, end: 20090929
  5. CALCIUM CHANNEL BLOCKERS [Concomitant]
  6. COUMADIN [Concomitant]

REACTIONS (4)
  - BLOOD POTASSIUM INCREASED [None]
  - DYSPNOEA [None]
  - LIFE SUPPORT [None]
  - OEDEMA [None]
